FAERS Safety Report 21144343 (Version 1)
Quarter: 2022Q3

REPORT INFORMATION
  Report Type: Spontaneous
  Country: US (occurrence: US)
  Receive Date: 20220728
  Receipt Date: 20220728
  Transmission Date: 20221026
  Serious: No
  Sender: FDA-Public Use
  Company Number: US-009507513-2207USA002869

PATIENT
  Sex: Female
  Weight: 67.1 kg

DRUGS (8)
  1. JANUVIA [Suspect]
     Active Substance: SITAGLIPTIN PHOSPHATE
     Dosage: 100 MILLIGRAM, ONCE
     Route: 048
  2. FINASTERIDE [Suspect]
     Active Substance: FINASTERIDE
     Dosage: 5 MILLIGRAM, ONCE
     Route: 048
  3. ASPIRIN [Suspect]
     Active Substance: ASPIRIN
     Dosage: 81 MILLIGRAM, ONCE
     Route: 048
  4. ATENOLOL [Suspect]
     Active Substance: ATENOLOL
     Dosage: 25 MILLIGRAM, ONCE
     Route: 048
  5. ALFUZOSIN HYDROCHLORIDE [Suspect]
     Active Substance: ALFUZOSIN HYDROCHLORIDE
     Dosage: 10 MILLIGRAM, ONCE
     Route: 048
  6. ADENOSINE [Suspect]
     Active Substance: ADENOSINE
     Dosage: 145 MILLIGRAM, ONCE
     Route: 048
  7. MEMANTINE [Suspect]
     Active Substance: MEMANTINE
     Dosage: 10 MILLIGRAM, ONCE
     Route: 048
  8. STOOL SOFTENER (DOCUSATE) [Suspect]
     Active Substance: DOCUSATE
     Route: 048

REACTIONS (3)
  - Nausea [Unknown]
  - Vomiting [Unknown]
  - Accidental exposure to product [Unknown]
